FAERS Safety Report 7767698-1 (Version None)
Quarter: 2011Q3

REPORT INFORMATION
  Report Type: 
  Country: None (occurrence: None)
  Receive Date: 20110922
  Receipt Date: 20110920
  Transmission Date: 20111222
  Serious: Yes (Other)
  Sender: FDA-Public Use
  Company Number: CO-PFIZER INC-2011177268

PATIENT
  Age: 89 Year
  Sex: Female

DRUGS (4)
  1. NORVASC [Suspect]
     Indication: BLOOD PRESSURE ABNORMAL
     Dosage: 5 MG, 1X/DAY
     Route: 048
     Dates: start: 20071101
  2. ALDOMET [Concomitant]
  3. LOSARTAN [Concomitant]
  4. THYROXIN [Concomitant]

REACTIONS (1)
  - ELECTROCARDIOGRAM AMBULATORY ABNORMAL [None]
